FAERS Safety Report 10129055 (Version 1)
Quarter: 2014Q2

REPORT INFORMATION
  Report Type: Spontaneous
  Country: US (occurrence: None)
  Receive Date: 20140424
  Receipt Date: 20140424
  Transmission Date: 20141212
  Serious: Yes (Other)
  Sender: FDA-Public Use
  Company Number: None

PATIENT
  Age: 48 Year
  Sex: Female

DRUGS (1)
  1. LEVAQUIN [Suspect]
     Route: 048
     Dates: start: 200808

REACTIONS (6)
  - Blister [None]
  - Bone disorder [None]
  - Convulsion [None]
  - Confusional state [None]
  - Amnesia [None]
  - Immune system disorder [None]
